FAERS Safety Report 6543147-6 (Version None)
Quarter: 2010Q1

REPORT INFORMATION
  Report Type: 
  Country: None (occurrence: None)
  Receive Date: 20100120
  Receipt Date: 20100111
  Transmission Date: 20100710
  Serious: Yes (Hospitalization)
  Sender: FDA-Public Use
  Company Number: DE-AMGEN-US379934

PATIENT
  Age: 72 Year
  Sex: Male

DRUGS (8)
  1. ENBREL [Suspect]
     Indication: RHEUMATOID ARTHRITIS
     Route: 058
     Dates: start: 20080422, end: 20091201
  2. ENBREL [Suspect]
     Indication: POLYARTHRITIS
  3. PREDNISOLONE [Suspect]
     Dosage: 5 MG (FREQUENCY UNKNOWN)
     Route: 065
  4. CALCIUM CARBONATE [Suspect]
     Indication: OSTEOPOROSIS
     Dosage: UNKNOWN
     Route: 065
  5. RAMIPRIL [Suspect]
     Dosage: UNKNOWN
     Route: 065
  6. COLECALCIFEROL [Suspect]
     Indication: OSTEOPOROSIS
     Dosage: UNKNOWN
     Route: 065
  7. ARCOXIA [Suspect]
     Route: 065
  8. ALLO.COMP.-RATIOPHARM [Suspect]
     Dosage: UNKNOWN
     Route: 065

REACTIONS (1)
  - STRESS [None]
